FAERS Safety Report 10916925 (Version 2)
Quarter: 2015Q2

REPORT INFORMATION
  Report Type: Spontaneous
  Country: US (occurrence: US)
  Receive Date: 20150316
  Receipt Date: 20150524
  Transmission Date: 20150821
  Serious: Yes (Hospitalization)
  Sender: FDA-Public Use
  Company Number: US-JNJFOC-20140314314

PATIENT
  Age: 74 Year
  Sex: Male

DRUGS (17)
  1. NORVASC [Concomitant]
     Active Substance: AMLODIPINE BESYLATE
     Indication: HYPERTENSION
     Route: 048
     Dates: start: 20111108
  2. DECADRON [Concomitant]
     Active Substance: DEXAMETHASONE
     Indication: RASH
     Route: 048
     Dates: start: 20120701, end: 20120708
  3. DECADRON [Concomitant]
     Active Substance: DEXAMETHASONE
     Indication: RASH
     Route: 048
     Dates: start: 20120710, end: 20120711
  4. COUMADIN [Concomitant]
     Active Substance: WARFARIN SODIUM
     Route: 048
     Dates: start: 20091215
  5. HYDROCODONE BITARTRATE. [Concomitant]
     Active Substance: HYDROCODONE BITARTRATE
     Indication: PAIN IN EXTREMITY
     Dosage: 10 UNITS NOT SPECIFIED
     Route: 048
     Dates: start: 20111031
  6. COMPAZINE [Concomitant]
     Active Substance: PROCHLORPERAZINE MALEATE
     Indication: NAUSEA
     Route: 048
     Dates: start: 20120627
  7. DECADRON [Concomitant]
     Active Substance: DEXAMETHASONE
     Indication: RASH
     Route: 048
     Dates: start: 20120711, end: 20120806
  8. IPATASERTIB [Suspect]
     Active Substance: IPATASERTIB
     Indication: PROSTATE CANCER
     Route: 048
     Dates: start: 20120613
  9. PREDNISONE. [Suspect]
     Active Substance: PREDNISONE
     Indication: PROSTATE CANCER
     Route: 048
     Dates: start: 20120613
  10. LISINOPRIL. [Concomitant]
     Active Substance: LISINOPRIL
     Indication: HYPERTENSION
     Route: 048
     Dates: start: 2008
  11. PREDNISONE. [Concomitant]
     Active Substance: PREDNISONE
     Indication: BONE PAIN
     Route: 065
     Dates: start: 201109
  12. HYDROCODONE BITARTRATE. [Concomitant]
     Active Substance: HYDROCODONE BITARTRATE
     Indication: MUSCULOSKELETAL CHEST PAIN
     Dosage: 10 UNITS NOT SPECIFIED
     Route: 048
     Dates: start: 20111031
  13. HYDROCODONE BITARTRATE. [Concomitant]
     Active Substance: HYDROCODONE BITARTRATE
     Indication: BACK PAIN
     Dosage: 10 UNITS NOT SPECIFIED
     Route: 048
     Dates: start: 20111031
  14. ZYTIGA [Suspect]
     Active Substance: ABIRATERONE ACETATE
     Indication: PROSTATE CANCER
     Route: 048
     Dates: start: 20120613
  15. COLACE [Concomitant]
     Active Substance: DOCUSATE SODIUM
     Indication: CONSTIPATION
     Route: 048
     Dates: start: 201106
  16. IMODIUM [Concomitant]
     Active Substance: LOPERAMIDE HYDROCHLORIDE
     Indication: DIARRHOEA
     Route: 048
     Dates: start: 20120626
  17. BENADRYL [Concomitant]
     Active Substance: DIPHENHYDRAMINE HYDROCHLORIDE
     Indication: INSOMNIA
     Route: 048
     Dates: start: 200806

REACTIONS (3)
  - Diarrhoea [Recovered/Resolved]
  - Malaise [Unknown]
  - Hyperglycaemia [Unknown]

NARRATIVE: CASE EVENT DATE: 20120801
